FAERS Safety Report 20986205 (Version 1)
Quarter: 2022Q2

REPORT INFORMATION
  Report Type: Spontaneous
  Country: US (occurrence: None)
  Receive Date: 20220617
  Receipt Date: 20220617
  Transmission Date: 20220721
  Serious: Yes (Hospitalization)
  Sender: FDA-Public Use
  Company Number: None

PATIENT
  Age: 64 Year
  Sex: Male

DRUGS (1)
  1. CAPECITABINE [Suspect]
     Active Substance: CAPECITABINE
     Indication: Oesophageal carcinoma
     Dosage: 1000MG BID ORAL?
     Route: 048
     Dates: start: 202204

REACTIONS (2)
  - Pulmonary embolism [None]
  - Nephrolithiasis [None]

NARRATIVE: CASE EVENT DATE: 20220608
